FAERS Safety Report 16430984 (Version 2)
Quarter: 2019Q3

REPORT INFORMATION
  Report Type: Spontaneous
  Country: US (occurrence: US)
  Receive Date: 20190614
  Receipt Date: 20190705
  Transmission Date: 20191004
  Serious: Yes (Other)
  Sender: FDA-Public Use
  Company Number: US-BAYER-2019-114579

PATIENT
  Age: 48 Year
  Sex: Female
  Weight: 59.42 kg

DRUGS (2)
  1. MIRENA [Suspect]
     Active Substance: LEVONORGESTREL
     Indication: CONTRACEPTION
  2. MIRENA [Suspect]
     Active Substance: LEVONORGESTREL
     Indication: CONTRACEPTION
     Dosage: 20 MCG/24HR, CONT
     Route: 015
     Dates: start: 20161213, end: 20180918

REACTIONS (5)
  - Mood altered [None]
  - Pain [None]
  - Mood swings [None]
  - Genital haemorrhage [None]
  - Anxiety [None]

NARRATIVE: CASE EVENT DATE: 201805
